FAERS Safety Report 24327993 (Version 3)
Quarter: 2024Q4

REPORT INFORMATION
  Report Type: Report from Study
  Country: KR (occurrence: KR)
  Receive Date: 20240917
  Receipt Date: 20241023
  Transmission Date: 20250115
  Serious: Yes (Other)
  Sender: JOHNSON AND JOHNSON
  Company Number: KR-JNJFOC-20231060608

PATIENT
  Age: 82 Year
  Sex: Female
  Weight: 57 kg

DRUGS (5)
  1. LAZERTINIB [Suspect]
     Active Substance: LAZERTINIB
     Indication: Non-small cell lung cancer
     Route: 048
     Dates: start: 20230918, end: 20231003
  2. LAZERTINIB [Suspect]
     Active Substance: LAZERTINIB
     Dosage: MOST RECENT DOSE WAS ON 18/OCT/2023
     Route: 048
     Dates: start: 20231004, end: 20231018
  3. EXFORGE [Concomitant]
     Active Substance: AMLODIPINE BESYLATE\VALSARTAN
     Indication: Hypertension
     Dosage: 10/160MG
  4. TACOPEN [Concomitant]
     Indication: Pain
  5. OSIMERTINIB [Concomitant]
     Active Substance: OSIMERTINIB
     Route: 065
     Dates: start: 20240103, end: 20240121

REACTIONS (3)
  - Hyperkalaemia [Recovered/Resolved]
  - Acute kidney injury [Recovered/Resolved]
  - Blood creatinine increased [Recovered/Resolved]

NARRATIVE: CASE EVENT DATE: 20231004
